FAERS Safety Report 8759600 (Version 1)
Quarter: 2012Q4

REPORT INFORMATION
  Report Type: 
  Country: US (occurrence: US)
  Receive Date: 20120829
  Receipt Date: 20120829
  Transmission Date: 20130627
  Serious: No
  Sender: FDA-Public Use
  Company Number: US-JNJFOC-20120808599

PATIENT
  Sex: Male
  Weight: 91.17 kg

DRUGS (4)
  1. INVEGA [Suspect]
     Indication: SCHIZOPHRENIA
     Route: 048
     Dates: start: 20120710, end: 2012
  2. INVEGA [Suspect]
     Indication: SCHIZOPHRENIA
     Route: 048
  3. INVEGA [Suspect]
     Indication: SCHIZOPHRENIA
     Route: 048
     Dates: start: 2012, end: 2012
  4. ZYPREXA [Concomitant]
     Route: 065

REACTIONS (1)
  - Weight increased [Unknown]
